FAERS Safety Report 17929165 (Version 1)
Quarter: 2020Q2

REPORT INFORMATION
  Report Type: Spontaneous
  Country: US (occurrence: US)
  Receive Date: 20200622
  Receipt Date: 20200622
  Transmission Date: 20200714
  Serious: No
  Sender: FDA-Public Use
  Company Number: None

PATIENT

DRUGS (1)
  1. NORGETEX [Suspect]
     Active Substance: ACETAMINOPHEN\ORPHENADRINE CITRATE

REACTIONS (1)
  - Laryngeal oedema [None]
